FAERS Safety Report 18311887 (Version 1)
Quarter: 2020Q3

REPORT INFORMATION
  Report Type: Report from Study
  Country: CA (occurrence: CA)
  Receive Date: 20200925
  Receipt Date: 20200925
  Transmission Date: 20201103
  Serious: Yes (Other)
  Sender: FDA-Public Use
  Company Number: CA-ACCORD-202173

PATIENT
  Age: 25 Year
  Sex: Male

DRUGS (3)
  1. SUNITINIB [Suspect]
     Active Substance: SUNITINIB
     Indication: GERM CELL NEOPLASM
     Route: 065
  2. OXALIPLATIN. [Suspect]
     Active Substance: OXALIPLATIN
     Indication: GERM CELL NEOPLASM
     Route: 065
  3. GEMCITABINE. [Suspect]
     Active Substance: GEMCITABINE
     Indication: GERM CELL NEOPLASM
     Dosage: DOSAGE FORM : POWDER FOR SOLUTION INTRAVENOUS,INJECTION
     Route: 065

REACTIONS (3)
  - C-kit gene mutation [Unknown]
  - Off label use [Unknown]
  - Malaise [Unknown]
